FAERS Safety Report 15454618 (Version 9)
Quarter: 2021Q3

REPORT INFORMATION
  Report Type: Spontaneous
  Country: US (occurrence: US)
  Receive Date: 20181002
  Receipt Date: 20210805
  Transmission Date: 20211014
  Serious: No
  Sender: FDA-Public Use
  Company Number: US-PFIZER INC-2017519198

PATIENT
  Age: 55 Year
  Sex: Male
  Weight: 86.18 kg

DRUGS (3)
  1. CHANTIX [Suspect]
     Active Substance: VARENICLINE TARTRATE
     Indication: RESPIRATORY TRACT CONGESTION
     Dosage: UNK
     Dates: start: 201711, end: 201802
  2. CHANTIX [Suspect]
     Active Substance: VARENICLINE TARTRATE
     Dosage: 1 MG, 1X/DAY, WITH QUANTITY FOR 90 DAYS: 90 TABS
  3. CHANTIX [Suspect]
     Active Substance: VARENICLINE TARTRATE
     Indication: SMOKING CESSATION THERAPY
     Dosage: 1 MG, TWICE A DAY (CONTINUING MONTH BOX)
     Route: 048

REACTIONS (1)
  - Drug ineffective [Unknown]
